FAERS Safety Report 6547264-6 (Version None)
Quarter: 2010Q1

REPORT INFORMATION
  Report Type: 
  Country: None (occurrence: None)
  Receive Date: 20100122
  Receipt Date: 20090819
  Transmission Date: 20100710
  Serious: No
  Sender: FDA-Public Use
  Company Number: US-BAUSCH-2009BL004244

PATIENT
  Age: 51 Year
  Sex: Male

DRUGS (1)
  1. ZYLET [Suspect]
     Indication: CHALAZION
     Route: 047
     Dates: start: 20090719, end: 20090726

REACTIONS (6)
  - BLOOD PRESSURE INCREASED [None]
  - HYPOAESTHESIA [None]
  - HYPOAESTHESIA ORAL [None]
  - NERVOUSNESS [None]
  - PHARYNGEAL HYPOAESTHESIA [None]
  - TREMOR [None]
